FAERS Safety Report 13783664 (Version 3)
Quarter: 2017Q3

REPORT INFORMATION
  Report Type: Spontaneous
  Country: KR (occurrence: KR)
  Receive Date: 20170724
  Receipt Date: 20170913
  Transmission Date: 20171127
  Serious: No
  Sender: FDA-Public Use
  Company Number: KR-009507513-1705KOR005109

PATIENT
  Age: 41 Year
  Sex: Male

DRUGS (44)
  1. ALIMTA [Concomitant]
     Active Substance: PEMETREXED DISODIUM
     Dosage: 1025MG, ONCE
     Route: 042
     Dates: start: 20170116, end: 20170116
  2. ALIMTA [Concomitant]
     Active Substance: PEMETREXED DISODIUM
     Dosage: 1030MG, ONCE
     Route: 042
     Dates: start: 20170207, end: 20170207
  3. CISPLAN [Concomitant]
     Active Substance: CISPLATIN
     Dosage: 115MG , ONCE
     Route: 042
     Dates: start: 20170116, end: 20170116
  4. DEXAMETHASONE SODIUM PHOSPHATE. [Concomitant]
     Active Substance: DEXAMETHASONE SODIUM PHOSPHATE
     Dosage: 12 MG, ONCE
     Route: 042
     Dates: start: 20161226, end: 20161226
  5. DEXAMETHASONE SODIUM PHOSPHATE. [Concomitant]
     Active Substance: DEXAMETHASONE SODIUM PHOSPHATE
     Dosage: 8 MG, ONCE
     Route: 042
     Dates: start: 20170208, end: 20170208
  6. ALOXI [Concomitant]
     Active Substance: PALONOSETRON HYDROCHLORIDE
     Dosage: 0.25MG, ONCE
     Route: 042
     Dates: start: 20170116, end: 20170116
  7. ATIVAN [Concomitant]
     Active Substance: LORAZEPAM
     Indication: PERSISTENT DEPRESSIVE DISORDER
     Dosage: 0.5 MG, 1 TABLET, QD
     Route: 048
     Dates: start: 201608
  8. EMEND (FOSAPREPITANT DIMEGLUMINE) [Suspect]
     Active Substance: FOSAPREPITANT DIMEGLUMINE
     Indication: PROPHYLAXIS OF NAUSEA AND VOMITING
     Dosage: 150 MG, ONCE
     Route: 042
     Dates: start: 20161128, end: 20161128
  9. ALIMTA [Concomitant]
     Active Substance: PEMETREXED DISODIUM
     Indication: NON-SMALL CELL LUNG CANCER
     Dosage: 1030MG, ONCE
     Route: 042
     Dates: start: 20161128, end: 20161128
  10. DEXAMETHASONE SODIUM PHOSPHATE. [Concomitant]
     Active Substance: DEXAMETHASONE SODIUM PHOSPHATE
     Dosage: 8 MG, ONCE
     Route: 042
     Dates: start: 20161227, end: 20161227
  11. MYAMBUTOL [Concomitant]
     Active Substance: ETHAMBUTOL HYDROCHLORIDE
     Indication: PULMONARY TUBERCULOSIS
     Dosage: 1200 MG, THREE TABLET, TID
     Route: 048
     Dates: end: 20170208
  12. STIMOL [Concomitant]
     Indication: PROPHYLAXIS
     Dosage: 1 PK, TID
     Route: 048
     Dates: start: 20161129, end: 20161207
  13. CISPLAN [Concomitant]
     Active Substance: CISPLATIN
     Dosage: 116MG , ONCE
     Route: 042
     Dates: start: 20170207, end: 20170207
  14. DEXAMETHASONE SODIUM PHOSPHATE. [Concomitant]
     Active Substance: DEXAMETHASONE SODIUM PHOSPHATE
     Indication: PREMEDICATION
     Dosage: 12 MG, ONCE
     Route: 042
     Dates: start: 20161128, end: 20161128
  15. DEXAMETHASONE SODIUM PHOSPHATE. [Concomitant]
     Active Substance: DEXAMETHASONE SODIUM PHOSPHATE
     Dosage: 8 MG, ONCE
     Route: 042
     Dates: start: 20161129, end: 20161129
  16. DEXAMETHASONE SODIUM PHOSPHATE. [Concomitant]
     Active Substance: DEXAMETHASONE SODIUM PHOSPHATE
     Dosage: 8 MG, ONCE
     Route: 042
     Dates: start: 20170117, end: 20170117
  17. DEXAMETHASONE. [Concomitant]
     Active Substance: DEXAMETHASONE
     Dosage: 8 MG, BID
     Route: 048
     Dates: start: 20170209, end: 20170210
  18. ALOXI [Concomitant]
     Active Substance: PALONOSETRON HYDROCHLORIDE
     Indication: PREMEDICATION
     Dosage: 0.25MG, ONCE
     Route: 042
     Dates: start: 20161128, end: 20161128
  19. FOLIC ACID. [Concomitant]
     Active Substance: FOLIC ACID
     Indication: PREMEDICATION
     Dosage: 1 MG, 1 TABLET, QD
     Route: 048
     Dates: start: 20161120
  20. YUHANZID [Concomitant]
     Active Substance: ISONIAZID
     Indication: PULMONARY TUBERCULOSIS
     Dosage: 300 MG, TREE TABLETS,QD
     Route: 048
     Dates: end: 20170208
  21. SYNATURA [Concomitant]
     Indication: PROPHYLAXIS
     Dosage: 1 PK, TID
     Route: 048
     Dates: end: 20170227
  22. EMEND (FOSAPREPITANT DIMEGLUMINE) [Suspect]
     Active Substance: FOSAPREPITANT DIMEGLUMINE
     Dosage: 150 MG, ONCE
     Route: 042
     Dates: start: 20170116, end: 20170116
  23. EMEND (FOSAPREPITANT DIMEGLUMINE) [Suspect]
     Active Substance: FOSAPREPITANT DIMEGLUMINE
     Dosage: 150 MG, ONCE
     Route: 042
     Dates: start: 20170207, end: 20170207
  24. ALIMTA [Concomitant]
     Active Substance: PEMETREXED DISODIUM
     Dosage: 1025MG, ONCE
     Route: 042
     Dates: start: 20161226, end: 20161226
  25. CISPLAN [Concomitant]
     Active Substance: CISPLATIN
     Indication: NON-SMALL CELL LUNG CANCER
     Dosage: 154.5MG, ONCE
     Route: 042
     Dates: start: 20161128, end: 20161128
  26. DEXAMETHASONE SODIUM PHOSPHATE. [Concomitant]
     Active Substance: DEXAMETHASONE SODIUM PHOSPHATE
     Dosage: 12 MG, ONCE
     Route: 042
     Dates: start: 20170207, end: 20170207
  27. ALOXI [Concomitant]
     Active Substance: PALONOSETRON HYDROCHLORIDE
     Dosage: 0.25MG, ONCE
     Route: 042
     Dates: start: 20161226, end: 20161226
  28. EMEND (FOSAPREPITANT DIMEGLUMINE) [Suspect]
     Active Substance: FOSAPREPITANT DIMEGLUMINE
     Dosage: 150 MG, ONCE
     Route: 042
     Dates: start: 20161226, end: 20161226
  29. CISPLAN [Concomitant]
     Active Substance: CISPLATIN
     Dosage: 115MG , ONCE
     Route: 042
     Dates: start: 20161226, end: 20161226
  30. ALOXI [Concomitant]
     Active Substance: PALONOSETRON HYDROCHLORIDE
     Dosage: 0.25MG, ONCE
     Route: 042
     Dates: start: 20170207, end: 20170207
  31. CODEINE PHOSPHATE [Concomitant]
     Active Substance: CODEINE PHOSPHATE
     Indication: PAIN PROPHYLAXIS
     Dosage: 1 TABLET, TID
     Route: 048
     Dates: start: 20161120, end: 20161126
  32. DUPHALAC [Concomitant]
     Active Substance: LACTULOSE
     Indication: CONSTIPATION PROPHYLAXIS
     Dosage: 1 DF (PK), ONCE
     Route: 048
     Dates: start: 20161128, end: 20161128
  33. TANTUM [Concomitant]
     Active Substance: BENZYDAMINE HYDROCHLORIDE
     Indication: PROPHYLAXIS
     Dosage: 2 BOTLES (BTL), QD, ROUTE OF ADMINISTRATION REPORTED AS GARGLE
     Route: 050
     Dates: start: 20161128, end: 20170111
  34. DEXAMETHASONE. [Concomitant]
     Active Substance: DEXAMETHASONE
     Dosage: 8 MG, BID
     Route: 048
     Dates: start: 20170118, end: 20170119
  35. LANSTON [Concomitant]
     Active Substance: LANSOPRAZOLE
     Indication: PROPHYLAXIS
     Dosage: 15 MG, 1 TABLET, QD
     Route: 048
     Dates: end: 20170208
  36. TYLENOL EXTENDED RELIEF CAPLETS [Concomitant]
     Active Substance: ACETAMINOPHEN
     Indication: PROPHYLAXIS
     Dosage: 2 TABLETS, 1300 MG, TID
     Route: 048
     Dates: start: 20161121, end: 20170104
  37. MACPERAN [Concomitant]
     Active Substance: METOCLOPRAMIDE HYDROCHLORIDE
     Indication: PROPHYLAXIS OF NAUSEA AND VOMITING
     Dosage: 1 TABLET, QD
     Route: 048
     Dates: start: 20161129, end: 20170212
  38. DEXAMETHASONE SODIUM PHOSPHATE. [Concomitant]
     Active Substance: DEXAMETHASONE SODIUM PHOSPHATE
     Dosage: 12 MG, ONCE
     Route: 042
     Dates: start: 20170116, end: 20170116
  39. DEXAMETHASONE. [Concomitant]
     Active Substance: DEXAMETHASONE
     Indication: PROPHYLAXIS
     Dosage: 8 MG, BID
     Route: 048
     Dates: start: 20161130, end: 20161201
  40. CYMBALTA [Concomitant]
     Active Substance: DULOXETINE HYDROCHLORIDE
     Indication: PERSISTENT DEPRESSIVE DISORDER
     Dosage: 60 MG, 1 CAPSULE, QD
     Route: 048
     Dates: start: 201608
  41. MAGO [Concomitant]
     Indication: CONSTIPATION PROPHYLAXIS
     Dosage: 250 MG, 1 CAPSULE, TID
     Route: 048
     Dates: start: 20161129, end: 20161129
  42. SYLCON [Concomitant]
     Indication: CONSTIPATION PROPHYLAXIS
     Dosage: 625 MG, 1 TABLET, TID
     Route: 048
     Dates: start: 20161129, end: 20161129
  43. DEXAMETHASONE. [Concomitant]
     Active Substance: DEXAMETHASONE
     Dosage: 8 MG, BID
     Route: 048
     Dates: start: 20161228, end: 20161229
  44. CURAN [Concomitant]
     Active Substance: RANITIDINE HYDROCHLORIDE
     Indication: PROPHYLAXIS
     Dosage: 150 MG, 1 TABLET,  BID
     Route: 048
     Dates: start: 20161128, end: 20161128

REACTIONS (5)
  - Upper respiratory tract infection [Recovered/Resolved]
  - Pyrexia [Recovered/Resolved]
  - Nausea [Recovered/Resolved]
  - Oropharyngeal pain [Recovered/Resolved]
  - Rhinorrhoea [Recovered/Resolved]

NARRATIVE: CASE EVENT DATE: 20161212
